FAERS Safety Report 4970200-0 (Version None)
Quarter: 2006Q2

REPORT INFORMATION
  Report Type: 
  Country: None (occurrence: None)
  Receive Date: 20060406
  Receipt Date: 20060320
  Transmission Date: 20061013
  Serious: Yes (Other)
  Sender: FDA-Public Use
  Company Number: 2004-06704

PATIENT
  Age: 12 Year
  Sex: Male
  Weight: 35.7 kg

DRUGS (12)
  1. TENOFOVIR DISOPROXIL FUMARATE [Suspect]
     Indication: HIV INFECTION
     Dosage: 225 MG, ONCE A DAY, ORAL
     Route: 048
     Dates: start: 20020123
  2. LAMIVUDINE [Concomitant]
  3. STAVUDINE [Concomitant]
  4. KALETRA [Concomitant]
  5. IBUPROFEN [Concomitant]
  6. LOPERAMIDE HCL [Concomitant]
  7. FLUTICASONE PROPIONATE [Concomitant]
  8. MVI (MULTIVITAMINS) [Concomitant]
  9. AVEENO LOTION (CALADRYL) [Concomitant]
  10. CYPROHEPTADINE HCL [Concomitant]
  11. PEPTO-BISMOL                  (BISMUTH SUBSALICYLATE) [Concomitant]
  12. CONCERTA [Concomitant]

REACTIONS (5)
  - BONE DENSITY DECREASED [None]
  - CONTUSION [None]
  - LIMB INJURY [None]
  - OEDEMA PERIPHERAL [None]
  - PAIN IN EXTREMITY [None]
